FAERS Safety Report 6266753-5 (Version None)
Quarter: 2009Q3

REPORT INFORMATION
  Report Type: 
  Country: None (occurrence: None)
  Receive Date: 20090710
  Receipt Date: 20090710
  Transmission Date: 20100115
  Serious: Yes (Other)
  Sender: FDA-Public Use
  Company Number: None

PATIENT
  Sex: Female
  Weight: 73.9363 kg

DRUGS (4)
  1. KEPPRA [Suspect]
     Indication: EPILEPSY
     Dosage: 250MG BID PO
     Route: 048
     Dates: start: 20090401
  2. LOTENSIN HCT [Concomitant]
  3. SYNTHROID [Concomitant]
  4. ZOCOR [Concomitant]

REACTIONS (5)
  - CHOKING SENSATION [None]
  - DYSARTHRIA [None]
  - GAIT DISTURBANCE [None]
  - PARAESTHESIA [None]
  - PRODUCT SUBSTITUTION ISSUE [None]
